FAERS Safety Report 12838244 (Version 1)
Quarter: 2016Q4

REPORT INFORMATION
  Report Type: Spontaneous
  Country: US (occurrence: US)
  Receive Date: 20161012
  Receipt Date: 20161012
  Transmission Date: 20170207
  Serious: No
  Sender: FDA-Public Use
  Company Number: US-009507513-1610USA001575

PATIENT
  Sex: Male

DRUGS (2)
  1. SIROLIMUS. [Concomitant]
     Active Substance: SIROLIMUS
     Dosage: UNK
  2. INTRON A [Suspect]
     Active Substance: INTERFERON ALFA-2B
     Indication: NEOPLASM MALIGNANT
     Dosage: EVERY MONDAY, WEDNESDAY AND FRIDAY, STRENGTH: 10 IU/1ML
     Route: 058
     Dates: start: 20140624

REACTIONS (1)
  - Influenza like illness [Unknown]
